FAERS Safety Report 12844085 (Version 5)
Quarter: 2017Q2

REPORT INFORMATION
  Report Type: Spontaneous
  Country: JP (occurrence: JP)
  Receive Date: 20161013
  Receipt Date: 20170426
  Transmission Date: 20170830
  Serious: Yes (Other)
  Sender: FDA-Public Use
  Company Number: JP-AMGEN-JPNSP2016105846

PATIENT
  Age: 68 Year
  Sex: Female

DRUGS (5)
  1. NESP [Suspect]
     Active Substance: DARBEPOETIN ALFA
     Dosage: 60 MUG, QWK
     Route: 065
  2. RIONA [Concomitant]
     Active Substance: FERRIC CITRATE ANHYDROUS
     Dosage: UNK
     Route: 048
  3. NESP [Suspect]
     Active Substance: DARBEPOETIN ALFA
     Indication: NEPHROGENIC ANAEMIA
     Dosage: 40-60 MUG, QWK
     Route: 065
  4. NESP [Suspect]
     Active Substance: DARBEPOETIN ALFA
     Dosage: 120 TO 180 MUG, QWK
     Route: 065
  5. NESP [Suspect]
     Active Substance: DARBEPOETIN ALFA
     Dosage: 180 MUG, UNK
     Route: 065

REACTIONS (2)
  - Aplasia pure red cell [Unknown]
  - Nephrogenic anaemia [Unknown]
